FAERS Safety Report 25790249 (Version 1)
Quarter: 2025Q3

REPORT INFORMATION
  Report Type: Spontaneous
  Country: EU (occurrence: EU)
  Receive Date: 20250911
  Receipt Date: 20250911
  Transmission Date: 20251021
  Serious: Yes (Hospitalization)
  Sender: ABBVIE
  Company Number: EU-ABBVIE-1000085888

PATIENT
  Age: 69 Year
  Sex: Male
  Weight: 72 kg

DRUGS (16)
  1. CITALOPRAM [Suspect]
     Active Substance: CITALOPRAM
     Indication: Depression
     Route: 048
     Dates: start: 20111019
  2. CITALOPRAM [Suspect]
     Active Substance: CITALOPRAM
     Indication: Depression
     Dosage: DAILY DOSE: 20.0 MG, TOTAL: 58400.0 MG, FORM: UNKNOWN
     Route: 048
     Dates: start: 20040315, end: 20111017
  3. CITALOPRAM [Suspect]
     Active Substance: CITALOPRAM
     Indication: Depression
     Dosage: 20 MG, QD
     Route: 048
  4. CITALOPRAM [Suspect]
     Active Substance: CITALOPRAM
     Indication: Depression
     Route: 048
  5. CLOPIDOGREL [Suspect]
     Active Substance: CLOPIDOGREL BISULFATE
     Indication: Cerebrovascular accident
     Route: 065
  6. CLOPIDOGREL [Suspect]
     Active Substance: CLOPIDOGREL BISULFATE
     Indication: Cerebrovascular accident
     Dosage: DAILY DOSE: 75.0 MG
     Route: 065
     Dates: start: 2004
  7. CLOPIDOGREL [Suspect]
     Active Substance: CLOPIDOGREL BISULFATE
     Indication: Cerebrovascular accident
     Dosage: 75 MG, QD
     Route: 065
  8. ASPIRIN [Suspect]
     Active Substance: ASPIRIN
     Indication: Myocardial infarction
     Dosage: DAILY DOSE: 75.0 MG, TOTAL: 410625.0 MG
     Route: 065
     Dates: start: 19960809, end: 20111017
  9. ASPIRIN [Suspect]
     Active Substance: ASPIRIN
     Indication: Myocardial infarction
     Dosage: 75 MG, QD
     Route: 065
  10. ALISKIREN [Suspect]
     Active Substance: ALISKIREN
     Indication: Cardiac failure
     Route: 048
     Dates: start: 20090820, end: 20090910
  11. ALISKIREN [Suspect]
     Active Substance: ALISKIREN
     Indication: Cardiac failure
     Route: 048
  12. ATORVASTATIN [Concomitant]
     Active Substance: ATORVASTATIN
     Indication: Hypercholesterolaemia
     Dosage: DAILY DOSE: 80.0 MG?80 MG, QD
     Route: 065
     Dates: start: 20090828
  13. CARVEDILOL [Concomitant]
     Active Substance: CARVEDILOL
     Indication: Cardiac failure
     Dosage: DAILY DOSE: 50.0 MG?25 MG, BID
     Route: 065
     Dates: start: 20080118
  14. ENALAPRIL [Suspect]
     Active Substance: ENALAPRIL
     Indication: Cardiac failure
     Route: 048
     Dates: start: 20090910
  15. FUROSEMIDE [Concomitant]
     Active Substance: FUROSEMIDE
     Indication: Cardiac failure
     Dosage: DAILY DOSE: 40.0 MG?40 MG, QD
     Route: 065
     Dates: start: 20040213
  16. ASPIRIN [Suspect]
     Active Substance: ASPIRIN
     Indication: Myocardial infarction
     Dosage: 75 MG, QD
     Route: 065

REACTIONS (1)
  - Anaemia [Recovered/Resolved]

NARRATIVE: CASE EVENT DATE: 20111017
